FAERS Safety Report 4641045-6 (Version None)
Quarter: 2005Q2

REPORT INFORMATION
  Report Type: 
  Country: None (occurrence: None)
  Receive Date: 20050421
  Receipt Date: 20050302
  Transmission Date: 20051028
  Serious: Yes (Hospitalization)
  Sender: FDA-Public Use
  Company Number: FR-JNJFOC-20050301390

PATIENT
  Age: 40 Year
  Sex: Female
  Weight: 105 kg

DRUGS (15)
  1. REMICADE [Suspect]
     Dosage: 4TH INFUSION
     Route: 042
  2. REMICADE [Suspect]
     Dosage: 3RD INFUSION
     Route: 042
  3. REMICADE [Suspect]
     Dosage: 2ND INFUSION
     Route: 042
  4. REMICADE [Suspect]
     Indication: EOSINOPHILIC FASCIITIS
     Dosage: 1ST INFUSION
     Route: 042
  5. CORTANCYL [Concomitant]
     Indication: FASCIITIS
     Route: 049
  6. ACTONEL [Concomitant]
     Route: 049
  7. OSTRAM D3 [Concomitant]
     Route: 049
  8. OSTRAM D3 [Concomitant]
     Route: 049
  9. DEPAKOTE [Concomitant]
     Route: 049
  10. TERCIAN [Concomitant]
     Route: 049
  11. SEROPRAM [Concomitant]
     Route: 049
  12. NOCTRAN [Concomitant]
     Route: 049
  13. NOCTRAN [Concomitant]
     Route: 049
  14. NOCTRAN [Concomitant]
     Route: 049
  15. RIVOTRIL [Concomitant]
     Route: 049

REACTIONS (1)
  - PSORIASIS [None]
